FAERS Safety Report 17889312 (Version 1)
Quarter: 2020Q2

REPORT INFORMATION
  Report Type: Spontaneous
  Country: US (occurrence: US)
  Receive Date: 20200611
  Receipt Date: 20200611
  Transmission Date: 20200714
  Serious: Yes (Death)
  Sender: FDA-Public Use
  Company Number: None

PATIENT
  Age: 76 Year
  Sex: Male

DRUGS (5)
  1. LISINOPRIL. [Concomitant]
     Active Substance: LISINOPRIL
  2. CYCLOPHOSPHAMIDE. [Concomitant]
     Active Substance: CYCLOPHOSPHAMIDE
  3. ZOCOR [Concomitant]
     Active Substance: SIMVASTATIN
  4. ZARXIO [Suspect]
     Active Substance: FILGRASTIM-SNDZ
     Indication: PLASMA CELL MYELOMA
     Route: 058
     Dates: start: 20191214, end: 202005
  5. DEXAMETHASON [Concomitant]
     Active Substance: DEXAMETHASONE

REACTIONS (1)
  - Death [None]

NARRATIVE: CASE EVENT DATE: 202005
